FAERS Safety Report 5353165-1 (Version None)
Quarter: 2007Q2

REPORT INFORMATION
  Report Type: 
  Country: None (occurrence: None)
  Receive Date: 20070607
  Receipt Date: 20070525
  Transmission Date: 20071010
  Serious: Yes (Hospitalization)
  Sender: FDA-Public Use
  Company Number: GB-1163116

PATIENT
  Age: 48 Year
  Sex: Male

DRUGS (8)
  1. I CAPS LZ [Suspect]
     Indication: NUTRITIONAL SUPPORT
     Dosage: 1 TABLET, ORAL
     Route: 048
  2. ASPIRIN [Concomitant]
  3. DALTEPARIN SODIUM (DALTEPARIN SODIUM) [Concomitant]
  4. CLOPADRIL [Concomitant]
  5. AMIODARONE HCL [Concomitant]
  6. ZINADRIL (BENAZEPRIL HYDROCHLORIDE) [Concomitant]
  7. FINASTERIDE [Concomitant]
  8. GINKGO BILOBA (GINKGO BILOBA) [Concomitant]

REACTIONS (1)
  - CARDIAC DISORDER [None]
